FAERS Safety Report 5846112-7 (Version None)
Quarter: 2008Q3

REPORT INFORMATION
  Report Type: 
  Country: None (occurrence: None)
  Receive Date: 20080814
  Receipt Date: 20080804
  Transmission Date: 20090109
  Serious: Yes (Death, Other)
  Sender: FDA-Public Use
  Company Number: US-PFIZER INC-2008065260

PATIENT
  Sex: Male
  Weight: 84.09 kg

DRUGS (9)
  1. VIAGRA [Suspect]
     Indication: ERECTILE DYSFUNCTION
  2. SINEMET [Concomitant]
  3. COMTAN [Concomitant]
  4. PROVIGIL [Concomitant]
  5. LIPITOR [Concomitant]
  6. LISINOPRIL [Concomitant]
  7. MULTI-VITAMINS [Concomitant]
  8. CALCIUM [Concomitant]
  9. VITAMIN B-12 [Concomitant]

REACTIONS (4)
  - COGNITIVE DISORDER [None]
  - DEATH [None]
  - HYPOKINESIA [None]
  - PSYCHIATRIC SYMPTOM [None]
